FAERS Safety Report 8160640-3 (Version None)
Quarter: 2012Q1

REPORT INFORMATION
  Report Type: 
  Country: None (occurrence: None)
  Receive Date: 20120223
  Receipt Date: 20120210
  Transmission Date: 20120608
  Serious: Yes (Life-Threatening, Hospitalization)
  Sender: FDA-Public Use
  Company Number: US-ROCHE-789378

PATIENT
  Sex: Female
  Weight: 74.4 kg

DRUGS (27)
  1. ASPIRIN [Concomitant]
     Indication: PROPHYLAXIS
     Route: 048
  2. IBUPROFEN [Concomitant]
  3. TRAMADOL HCL [Concomitant]
  4. MULTI-VITAMIN [Concomitant]
     Indication: PROPHYLAXIS
     Route: 048
     Dates: start: 20080425
  5. ZELBORAF [Suspect]
     Dosage: DOSE MODIFIED DUE TO AN ADVERSE EVENT AND THEN INTERRUPTED ON 22 JUL 2011 (REASON NOT SPECIFIED)
     Route: 048
     Dates: start: 20110714, end: 20110722
  6. ZELBORAF [Suspect]
     Route: 048
     Dates: start: 20110819, end: 20110826
  7. ZELBORAF [Suspect]
     Route: 048
     Dates: start: 20110929, end: 20111013
  8. ZELBORAF [Suspect]
     Route: 048
     Dates: start: 20111021, end: 20111023
  9. NADOLOL [Concomitant]
     Indication: ESSENTIAL HYPERTENSION
     Route: 048
  10. ZELBORAF [Suspect]
     Route: 048
     Dates: start: 20110827, end: 20110918
  11. PROBIOTIC SUPPLEMENT NOS [Concomitant]
     Indication: PROPHYLAXIS
     Dates: start: 20111201
  12. ZELBORAF [Suspect]
     Dosage: DOSE MODIFIED DUE TO AE, THEN INTERRUPTED AGAIN (REASON NOT SPECIFIED)
     Route: 048
     Dates: start: 20110728, end: 20110810
  13. ZELBORAF [Suspect]
     Route: 048
     Dates: start: 20111221, end: 20120101
  14. CICLESONIDE [Concomitant]
  15. CODEINE SUL TAB [Concomitant]
     Indication: DIARRHOEA
     Dosage: TAKEN FOR AE:DIARRHOEA
     Route: 048
  16. BIFIDOBACTERIUM [Concomitant]
     Indication: PROPHYLAXIS
     Dosage: REPORT AS ALIGN OR
     Route: 048
     Dates: start: 20090604, end: 20111218
  17. ATIVAN [Concomitant]
     Indication: INSOMNIA
     Route: 048
     Dates: start: 20080425, end: 20110922
  18. CITRACAL + D [Concomitant]
     Indication: PROPHYLAXIS
     Route: 048
     Dates: start: 20110623, end: 20111020
  19. CHOLECALCIFEROL [Concomitant]
  20. NORVASC [Concomitant]
     Indication: ESSENTIAL HYPERTENSION
     Route: 048
     Dates: start: 20080501, end: 20110714
  21. SYNTHROID [Concomitant]
     Indication: THYROIDECTOMY
     Route: 048
     Dates: start: 20100909
  22. ZELBORAF [Suspect]
     Route: 048
     Dates: start: 20111014, end: 20111020
  23. ZELBORAF [Suspect]
     Route: 048
     Dates: start: 20111024, end: 20111112
  24. ZELBORAF [Suspect]
     Route: 048
  25. ZELBORAF [Suspect]
     Indication: THYROID CANCER
     Dosage: LAST DOSE PRIOR TO SAE 07 JULY 2011.
     Route: 048
     Dates: start: 20110630, end: 20110707
  26. ZELBORAF [Suspect]
     Route: 048
     Dates: start: 20110920, end: 20110922
  27. ZELBORAF [Suspect]
     Route: 048
     Dates: start: 20111117, end: 20111219

REACTIONS (7)
  - RASH MACULAR [None]
  - HYPOTENSION [None]
  - ALANINE AMINOTRANSFERASE INCREASED [None]
  - ASPARTATE AMINOTRANSFERASE INCREASED [None]
  - RASH ERYTHEMATOUS [None]
  - FATIGUE [None]
  - BLOOD URIC ACID INCREASED [None]
